FAERS Safety Report 25837624 (Version 1)
Quarter: 2025Q3

REPORT INFORMATION
  Report Type: Report from Study
  Country: PR (occurrence: PR)
  Receive Date: 20250923
  Receipt Date: 20250923
  Transmission Date: 20251021
  Serious: No
  Sender: MALLINCKRODT
  Company Number: PR-MALLINCKRODT-MNK202505545

PATIENT
  Sex: Female

DRUGS (2)
  1. CORTICOTROPIN [Suspect]
     Active Substance: CORTICOTROPIN
     Indication: Sarcoidosis
  2. OXYGEN [Concomitant]
     Active Substance: OXYGEN

REACTIONS (3)
  - Osteoarthritis [Unknown]
  - Osteopenia [Unknown]
  - Joint swelling [Unknown]
